FAERS Safety Report 10403639 (Version 3)
Quarter: 2015Q1

REPORT INFORMATION
  Report Type: Spontaneous
  Country: US (occurrence: US)
  Receive Date: 20140822
  Receipt Date: 20150227
  Transmission Date: 20150720
  Serious: Yes (Life-Threatening, Other)
  Sender: FDA-Public Use
  Company Number: US-ELI_LILLY_AND_COMPANY-US201401008959

PATIENT
  Sex: Female

DRUGS (3)
  1. CYMBALTA [Suspect]
     Active Substance: DULOXETINE HYDROCHLORIDE
     Dosage: 40 MG, UNKNOWN
  2. CYMBALTA [Suspect]
     Active Substance: DULOXETINE HYDROCHLORIDE
     Indication: FIBROMYALGIA
     Dosage: UNK UNK, UNKNOWN
     Route: 065
     Dates: start: 200902
  3. CYMBALTA [Suspect]
     Active Substance: DULOXETINE HYDROCHLORIDE
     Dosage: 20 MG, UNKNOWN
     Route: 065
     Dates: end: 20100213

REACTIONS (15)
  - Feeling abnormal [Unknown]
  - Pruritus [Unknown]
  - Chest pain [Unknown]
  - Dizziness [Unknown]
  - Loss of consciousness [Unknown]
  - Vomiting [Unknown]
  - Suicidal ideation [Unknown]
  - Drug ineffective [Unknown]
  - Musculoskeletal stiffness [Unknown]
  - Paraesthesia [Unknown]
  - Influenza like illness [Unknown]
  - Hallucination [Unknown]
  - Communication disorder [Unknown]
  - Insomnia [Unknown]
  - Withdrawal syndrome [Unknown]
